FAERS Safety Report 14680486 (Version 1)
Quarter: 2018Q1

REPORT INFORMATION
  Report Type: Spontaneous
  Country: US (occurrence: US)
  Receive Date: 20180324
  Receipt Date: 20180324
  Transmission Date: 20180509
  Serious: Yes (Death)
  Sender: FDA-Public Use
  Company Number: None

PATIENT
  Age: 69 Year
  Sex: Male

DRUGS (1)
  1. POMALYST [Suspect]
     Active Substance: POMALIDOMIDE
     Indication: PLASMA CELL MYELOMA
     Route: 048
     Dates: start: 20180205, end: 20180209

REACTIONS (6)
  - Pancytopenia [None]
  - Haemorrhage [None]
  - Hypercalcaemia [None]
  - Acute kidney injury [None]
  - Febrile neutropenia [None]
  - Metabolic encephalopathy [None]

NARRATIVE: CASE EVENT DATE: 20180223
